FAERS Safety Report 9028493 (Version 1)
Quarter: 2013Q1

REPORT INFORMATION
  Report Type: Spontaneous
  Country: CA (occurrence: CA)
  Receive Date: 20130124
  Receipt Date: 20130124
  Transmission Date: 20140127
  Serious: Yes (Death, Hospitalization)
  Sender: FDA-Public Use
  Company Number: CA-B.I. PHARMACEUTICALS,INC./RIDGEFIELD-2013-BI-01809YA

PATIENT
  Age: 78 Year
  Sex: Male
  Weight: 92 kg

DRUGS (15)
  1. TAMSULOSINA [Suspect]
     Indication: PRODUCT USED FOR UNKNOWN INDICATION
     Route: 065
  2. AGS-22M6E [Suspect]
     Indication: SMALL INTESTINE CARCINOMA METASTATIC
     Route: 042
     Dates: start: 20121023, end: 20121023
  3. GRAVOL (DIMENHYDRINATE) [Concomitant]
  4. ADVIL (IBUPROFEN) [Concomitant]
  5. NITRAZEPAM (NITRAZEPAM) [Concomitant]
  6. TIMOLOL (TIMOLOL) [Concomitant]
  7. VIAGRA (SILDENAFIL CITRATE) [Concomitant]
  8. PROSCAR [Concomitant]
  9. ALLOPURINOL [Concomitant]
  10. PANTOPRAZOLE (PANTOPRAZOLE) [Concomitant]
  11. DILTIAZEM [Concomitant]
  12. COLACE (DOCUSATE SODIUM) [Concomitant]
  13. PROCHLORPERAZINE (PROCHLORPERAZINE) [Concomitant]
  14. K-DUR (POTASSIUM CHLORIDE) [Concomitant]
  15. MAXILAN (CEFEPIME) [Concomitant]

REACTIONS (4)
  - Cardio-respiratory arrest [Fatal]
  - Urinary tract infection [Not Recovered/Not Resolved]
  - Confusional state [Not Recovered/Not Resolved]
  - Neutropenia [Not Recovered/Not Resolved]
